FAERS Safety Report 6508585-6 (Version None)
Quarter: 2009Q4

REPORT INFORMATION
  Report Type: 
  Country: None (occurrence: None)
  Receive Date: 20091221
  Receipt Date: 20091210
  Transmission Date: 20100525
  Serious: Yes (Other)
  Sender: FDA-Public Use
  Company Number: CA-ELI_LILLY_AND_COMPANY-CA200912002717

PATIENT
  Age: 89 Year
  Sex: Female

DRUGS (11)
  1. FORTEO [Suspect]
     Indication: OSTEOPOROSIS
     Dosage: 20 UG, DAILY (1/D)
     Dates: start: 20081016
  2. NOVO VENLAFAXINE [Concomitant]
     Dosage: 37.5 MG, DAILY (1/D)
  3. LIPITOR [Concomitant]
     Dosage: 15 MG, EACH EVENING
  4. CARBOCAL D [Concomitant]
     Dosage: UNK, 2/D
  5. APO-RAMIPRIL [Concomitant]
     Dosage: 2.5 MG, DAILY (1/D)
  6. PANTOLOC                           /01263201/ [Concomitant]
     Dosage: 40 MG, DAILY (1/D)
  7. LORAZEPAM [Concomitant]
     Dosage: 1 MG, EACH EVENING
  8. PLAVIX [Concomitant]
     Dosage: 75 MG, DAILY (1/D)
  9. ASAPHEN [Concomitant]
     Dosage: 80 MG, DAILY (1/D)
  10. APO-BISOPROLOL [Concomitant]
     Dosage: 2.5 MG, DAILY (1/D)
  11. NOVO-DOCUSATE [Concomitant]
     Dosage: 100 MG, EACH EVENING

REACTIONS (4)
  - DYSPHAGIA [None]
  - FACIAL PALSY [None]
  - MEMORY IMPAIRMENT [None]
  - TONGUE DISORDER [None]
